FAERS Safety Report 19396199 (Version 1)
Quarter: 2021Q2

REPORT INFORMATION
  Report Type: Report from Study
  Country: BE (occurrence: BE)
  Receive Date: 20210609
  Receipt Date: 20210609
  Transmission Date: 20210717
  Serious: Yes (Hospitalization, Other)
  Sender: FDA-Public Use
  Company Number: BE-JNJFOC-20210348291

PATIENT
  Age: 65 Year
  Sex: Male
  Weight: 97 kg

DRUGS (6)
  1. APALUTAMIDE [Suspect]
     Active Substance: APALUTAMIDE
     Indication: PROSTATE CANCER
     Dosage: MEDICATION KIT NUMBER: 1179
     Route: 048
     Dates: start: 20200822, end: 20200913
  2. AUGMENTIN [Concomitant]
     Active Substance: AMOXICILLIN\CLAVULANATE POTASSIUM
  3. DAFALGAN [Concomitant]
     Active Substance: ACETAMINOPHEN
     Route: 065
  4. FIRMAGON [Concomitant]
     Active Substance: DEGARELIX ACETATE
     Indication: PROSTATE CANCER
     Dosage: DOSE: 2 X 120 MG
     Route: 058
     Dates: start: 20200821
  5. IBUPROFEN. [Concomitant]
     Active Substance: IBUPROFEN
     Route: 065
  6. DEANXIT [Concomitant]
     Active Substance: FLUPENTIXOL DIHYDROCHLORIDE\MELITRACEN HYDROCHLORIDE
     Dosage: DOSE: 10/0.5 MG
     Route: 048

REACTIONS (2)
  - Interstitial lung disease [Recovered/Resolved with Sequelae]
  - Drug reaction with eosinophilia and systemic symptoms [Recovered/Resolved]

NARRATIVE: CASE EVENT DATE: 20200915
